FAERS Safety Report 18296501 (Version 1)
Quarter: 2020Q3

REPORT INFORMATION
  Report Type: Spontaneous
  Country: US (occurrence: US)
  Receive Date: 20200922
  Receipt Date: 20200922
  Transmission Date: 20201103
  Serious: Yes (Other)
  Sender: FDA-Public Use
  Company Number: US-FRESENIUS KABI-FK202009627

PATIENT
  Sex: Female
  Weight: 60 kg

DRUGS (3)
  1. SMOFLIPID [Suspect]
     Active Substance: FISH OIL\MEDIUM-CHAIN TRIGLYCERIDES\OLIVE OIL\SOYBEAN OIL
     Indication: PARENTERAL NUTRITION
     Dosage: 1 GM/KG/D
     Route: 065
     Dates: start: 202002
  2. AMINO ACIDS NOS [Concomitant]
     Active Substance: AMINO ACIDS, SOURCE UNSPECIFIED
     Indication: PARENTERAL NUTRITION
     Dosage: 122 GRAM; 2 GM/KG/D
     Route: 065
  3. GLUCOSE [Concomitant]
     Active Substance: DEXTROSE
     Indication: PARENTERAL NUTRITION
     Dosage: 245 GRAM; INFUSION RATE: 5 MG/KG/MIN
     Route: 065

REACTIONS (3)
  - Infection [Unknown]
  - Bacteraemia [Unknown]
  - Urinary tract infection [Unknown]
